FAERS Safety Report 18479738 (Version 1)
Quarter: 2020Q4

REPORT INFORMATION
  Report Type: Spontaneous
  Country: JP (occurrence: JP)
  Receive Date: 20201109
  Receipt Date: 20201109
  Transmission Date: 20210114
  Serious: Yes (Hospitalization, Other)
  Sender: FDA-Public Use
  Company Number: JP-PFIZER INC-2020427489

PATIENT
  Age: 52 Year
  Sex: Male

DRUGS (1)
  1. METRONIDAZOLE. [Suspect]
     Active Substance: METRONIDAZOLE
     Indication: ALCOHOLISM
     Dosage: UNK

REACTIONS (3)
  - Marchiafava-Bignami disease [Recovering/Resolving]
  - Off label use [Unknown]
  - Product use in unapproved indication [Unknown]
